FAERS Safety Report 8310101-3 (Version None)
Quarter: 2012Q2

REPORT INFORMATION
  Report Type: 
  Country: None (occurrence: None)
  Receive Date: 20120425
  Receipt Date: 20120411
  Transmission Date: 20120825
  Serious: Yes (Hospitalization)
  Sender: FDA-Public Use
  Company Number: US-VIROPHARMA INCORPORATED-20110822CINRY2206

PATIENT
  Sex: Male
  Weight: 84.898 kg

DRUGS (9)
  1. CINRYZE [Suspect]
     Dosage: UNKNOWN
  2. ALLEGRA [Concomitant]
     Indication: HYPERSENSITIVITY
     Route: 048
  3. SUMATRIPTAN [Concomitant]
     Indication: MIGRAINE
     Route: 048
  4. DANOCRINE [Concomitant]
     Indication: PRODUCT USED FOR UNKNOWN INDICATION
     Route: 048
  5. ATARAX [Concomitant]
     Indication: PRURITUS
     Route: 048
  6. EPIPEN [Concomitant]
     Indication: ALLERGY TO ARTHROPOD STING
     Route: 030
  7. CINRYZE [Suspect]
     Indication: HEREDITARY ANGIOEDEMA
     Dates: start: 20090101, end: 20110821
  8. BACITRACIN OPHTHALMIC [Concomitant]
     Indication: RASH
     Route: 061
  9. ROXICODONE [Concomitant]
     Indication: PAIN
     Route: 048

REACTIONS (5)
  - DEEP VEIN THROMBOSIS [None]
  - INFUSION RELATED REACTION [None]
  - INAPPROPRIATE SCHEDULE OF DRUG ADMINISTRATION [None]
  - HEADACHE [None]
  - POOR VENOUS ACCESS [None]
